FAERS Safety Report 7531074-7 (Version None)
Quarter: 2011Q2

REPORT INFORMATION
  Report Type: 
  Country: None (occurrence: None)
  Receive Date: 20110531
  Receipt Date: 20110531
  Transmission Date: 20111010
  Serious: Yes (Hospitalization, Other)
  Sender: FDA-Public Use
  Company Number: 2523595-2011-00016

PATIENT
  Age: 66 Year
  Sex: Female

DRUGS (2)
  1. ANTIBIOTICS (PIPERACILLINE/TAZOBACTAM, VANCOMYCIN AND CIPROFLOXACIN) [Concomitant]
  2. UVADEX [Suspect]
     Indication: PHOTOPHERESIS
     Dosage: 6.4 MG/KG (5 TOTAL)
     Dates: start: 20110420

REACTIONS (1)
  - EPSTEIN-BARR VIRUS ASSOCIATED LYMPHOPROLIFERATIVE DISORDER [None]
